FAERS Safety Report 8919189 (Version 2)
Quarter: 2012Q4

REPORT INFORMATION
  Report Type: 
  Country: BE (occurrence: BE)
  Receive Date: 20121121
  Receipt Date: 20121204
  Transmission Date: 20130627
  Serious: Yes (Hospitalization)
  Sender: FDA-Public Use
  Company Number: BE-AMGEN-BELSP2012073943

PATIENT
  Age: 72 Year
  Sex: Female

DRUGS (15)
  1. XGEVA [Suspect]
     Indication: BREAST CANCER STAGE IV
     Dosage: 120 mg, q4wk
     Route: 058
     Dates: start: 20120615
  2. XGEVA [Suspect]
     Indication: METASTASES TO BONE
  3. XGEVA [Suspect]
     Indication: METASTASES TO LYMPH NODES
  4. CALCIUM CARBONATE [Concomitant]
     Dosage: 1250 mg, qd
  5. LETROZOLE [Concomitant]
     Indication: BREAST CANCER
     Dosage: 2.5 mg, qd
  6. LETROZOLE [Concomitant]
     Indication: METASTASES TO BONE
  7. LETROZOLE [Concomitant]
     Indication: METASTASES TO LYMPH NODES
  8. D-CURE [Concomitant]
  9. CALCIUM VITAMIN D [Concomitant]
     Dosage: UNK UNK, qd
     Route: 048
  10. OMEPRAZOLE                         /00661202/ [Concomitant]
     Dosage: 20 mg, qd
     Route: 048
  11. XANAX [Concomitant]
  12. L-THYROXINE                        /00068001/ [Concomitant]
     Dosage: 20 UNK, UNK
     Route: 048
  13. DUROGESIC [Concomitant]
  14. SIPRALEXA                          /01588501/ [Concomitant]
     Dosage: 10 mg, qd
     Route: 048
  15. MOTILIUM                           /00498201/ [Concomitant]

REACTIONS (4)
  - Paraesthesia [Recovered/Resolved]
  - Hypomagnesaemia [Recovered/Resolved]
  - Hypokalaemia [Recovered/Resolved]
  - Hypocalcaemia [Recovered/Resolved]
